FAERS Safety Report 6563187-0 (Version None)
Quarter: 2010Q1

REPORT INFORMATION
  Report Type: 
  Country: None (occurrence: None)
  Receive Date: 20100130
  Receipt Date: 20091208
  Transmission Date: 20100710
  Serious: No
  Sender: FDA-Public Use
  Company Number: US-ABBOTT-09P-163-0613561-00

PATIENT
  Sex: Female

DRUGS (7)
  1. HUMIRA [Suspect]
     Indication: RHEUMATOID ARTHRITIS
     Route: 058
     Dates: start: 20080101, end: 20091001
  2. HUMIRA [Suspect]
     Indication: POLYCHONDRITIS
     Route: 058
     Dates: start: 20091107
  3. METHOTREXATE [Concomitant]
     Indication: RHEUMATOID ARTHRITIS
  4. METHOTREXATE [Concomitant]
     Indication: POLYCHONDRITIS
  5. FLU VACCINE [Concomitant]
     Indication: ANTIVIRAL PROPHYLAXIS
     Dates: start: 20091101, end: 20091101
  6. PNEUMONIA VACCINE [Concomitant]
     Indication: PROPHYLAXIS
     Dosage: UNKNOWN
     Dates: start: 20091101, end: 20091101
  7. PNEUMONIA VACCINE [Concomitant]
     Indication: PNEUMONIA

REACTIONS (5)
  - COUGH [None]
  - ORAL HERPES [None]
  - PAIN [None]
  - PYREXIA [None]
  - RESPIRATORY TRACT CONGESTION [None]
